FAERS Safety Report 20628655 (Version 1)
Quarter: 2022Q1

REPORT INFORMATION
  Report Type: Spontaneous
  Country: FR (occurrence: FR)
  Receive Date: 20220323
  Receipt Date: 20220323
  Transmission Date: 20220424
  Serious: Yes (Death)
  Sender: FDA-Public Use
  Company Number: None

PATIENT
  Age: 75 Year
  Sex: Male
  Weight: 80 kg

DRUGS (13)
  1. GLICLAZIDE [Suspect]
     Active Substance: GLICLAZIDE
     Indication: Type 2 diabetes mellitus
     Dosage: 60 MG, QD
     Route: 048
     Dates: end: 20220301
  2. LEVOFLOXACIN [Suspect]
     Active Substance: LEVOFLOXACIN
     Indication: Urinary tract infection
     Dosage: 500 MG, QD
     Route: 048
     Dates: start: 20220211, end: 20220301
  3. ATORVASTATIN [Suspect]
     Active Substance: ATORVASTATIN
     Indication: Dyslipidaemia
     Dosage: 40 MG, QD
     Route: 048
     Dates: start: 202110, end: 20220301
  4. ISONIAZID\RIFAMPIN [Suspect]
     Active Substance: ISONIAZID\RIFAMPIN
     Indication: Interferon gamma release assay positive
     Dosage: 2 DOSAGE FORM, QD
     Route: 048
     Dates: start: 20211223, end: 20220301
  5. PREDNISOLONE [Suspect]
     Active Substance: PREDNISOLONE
     Indication: Colitis
     Dosage: 20 MG, QD
     Route: 048
     Dates: start: 202111, end: 20220301
  6. KEYTRUDA [Suspect]
     Active Substance: PEMBROLIZUMAB
     Indication: Lung squamous cell carcinoma stage IV
     Dosage: 200 MG, QD (5EME CURE)
     Route: 042
     Dates: start: 20220211, end: 20220211
  7. KARDEGIC [Suspect]
     Active Substance: ASPIRIN DL-LYSINE
     Indication: Product used for unknown indication
     Dosage: 1 DOSAGE FORM, QD (POUDRE POUR SOLUTION BUVABLE EN SACHET-DOSE)
     Route: 048
     Dates: end: 20220301
  8. METFORMIN PAMOATE [Suspect]
     Active Substance: METFORMIN PAMOATE
     Indication: Type 2 diabetes mellitus
     Dosage: 3 DOSAGE FORM, QD (1CP 3/J) (COMPRIME SECABLE)
     Route: 048
     Dates: end: 20220301
  9. INSULIN GLARGINE [Concomitant]
     Active Substance: INSULIN GLARGINE
     Indication: Product used for unknown indication
     Dosage: UNK
     Route: 065
  10. BISOPROLOL FUMARATE [Concomitant]
     Active Substance: BISOPROLOL FUMARATE
     Indication: Product used for unknown indication
     Dosage: UNK
     Route: 065
  11. ZOPICLONE [Concomitant]
     Active Substance: ZOPICLONE
     Indication: Product used for unknown indication
     Dosage: UNK
     Route: 065
  12. PERINDOPRIL [Concomitant]
     Active Substance: PERINDOPRIL
     Indication: Product used for unknown indication
     Dosage: UNK
     Route: 065
  13. LEVOTHYROXINE [Concomitant]
     Active Substance: LEVOTHYROXINE
     Indication: Product used for unknown indication
     Dosage: UNK
     Route: 065

REACTIONS (1)
  - Hepatitis fulminant [Fatal]

NARRATIVE: CASE EVENT DATE: 20220228
